FAERS Safety Report 4355353-X (Version None)
Quarter: 2004Q2

REPORT INFORMATION
  Report Type: 
  Country: None (occurrence: None)
  Receive Date: 20040504
  Receipt Date: 20040421
  Transmission Date: 20050107
  Serious: Yes (Hospitalization)
  Sender: FDA-Public Use
  Company Number: REL-RIR-117

PATIENT
  Age: 57 Year
  Sex: Male

DRUGS (8)
  1. RYTHMOL [Suspect]
     Indication: ARRHYTHMIA
     Dosage: 300 MG QD PO
     Route: 048
     Dates: start: 20040210
  2. WARFARIN SODIUM [Suspect]
  3. TEDISAMIL SESQUIFUMARATE [Suspect]
     Indication: ATRIAL FIBRILLATION
     Dates: start: 20040209
  4. ATENOLOL [Suspect]
  5. MIDAZOLAM HCL [Suspect]
  6. PROPOFOL [Suspect]
     Dosage: 80 MG QD
  7. METOCLOPRAMIDE [Concomitant]
  8. FUROSEMIDE [Concomitant]

REACTIONS (3)
  - DRUG INEFFECTIVE [None]
  - HYPOTENSION [None]
  - RENAL FAILURE ACUTE [None]
